FAERS Safety Report 7885209-7 (Version None)
Quarter: 2011Q4

REPORT INFORMATION
  Report Type: 
  Country: None (occurrence: None)
  Receive Date: 20111102
  Receipt Date: 20111026
  Transmission Date: 20120403
  Serious: Yes (Other)
  Sender: FDA-Public Use
  Company Number: FR-BAXTER-2011BH033962

PATIENT
  Age: 55 Year
  Sex: Male

DRUGS (5)
  1. SUPRANE [Suspect]
     Indication: MAINTENANCE OF ANAESTHESIA
     Route: 055
     Dates: start: 20111025, end: 20111025
  2. NIMBEX [Suspect]
     Indication: PRODUCT USED FOR UNKNOWN INDICATION
     Route: 042
     Dates: start: 20111025, end: 20111025
  3. MIDAZOLAM [Suspect]
     Indication: INDUCTION OF ANAESTHESIA
     Route: 042
     Dates: start: 20111025, end: 20111025
  4. SUFENTA PRESERVATIVE FREE [Suspect]
     Indication: PRODUCT USED FOR UNKNOWN INDICATION
     Route: 065
     Dates: start: 20111025, end: 20111025
  5. DIPRIVAN [Suspect]
     Indication: INDUCTION OF ANAESTHESIA
     Route: 042
     Dates: start: 20111025, end: 20111025

REACTIONS (2)
  - UNWANTED AWARENESS DURING ANAESTHESIA [None]
  - DRUG INEFFECTIVE [None]
